FAERS Safety Report 12464358 (Version 2)
Quarter: 2016Q2

REPORT INFORMATION
  Report Type: Spontaneous
  Country: US (occurrence: US)
  Receive Date: 20160614
  Receipt Date: 20160617
  Transmission Date: 20160815
  Serious: Yes (Hospitalization, Other)
  Sender: FDA-Public Use
  Company Number: US-ALEXION PHARMACEUTICALS INC-A201604262

PATIENT
  Age: 48 Year
  Sex: Female

DRUGS (1)
  1. SOLIRIS [Suspect]
     Active Substance: ECULIZUMAB
     Indication: PAROXYSMAL NOCTURNAL HAEMOGLOBINURIA
     Dosage: 900 MG, Q2W
     Route: 042
     Dates: start: 20070907, end: 20160524

REACTIONS (6)
  - Pyrexia [Unknown]
  - Anaemia [Unknown]
  - Haemorrhage [Unknown]
  - Pulmonary oedema [Recovering/Resolving]
  - Chills [Unknown]
  - Device related sepsis [Unknown]

NARRATIVE: CASE EVENT DATE: 20160604
